FAERS Safety Report 13869546 (Version 1)
Quarter: 2017Q3

REPORT INFORMATION
  Report Type: Spontaneous
  Country: JP (occurrence: JP)
  Receive Date: 20170815
  Receipt Date: 20170815
  Transmission Date: 20171127
  Serious: Yes (Hospitalization, Other)
  Sender: FDA-Public Use
  Company Number: JP-SA-2017SA148813

PATIENT
  Age: 73 Year
  Sex: Male

DRUGS (20)
  1. LEVOCETIRIZINE [Suspect]
     Active Substance: LEVOCETIRIZINE
     Indication: PRURITUS
     Route: 048
     Dates: start: 20150525, end: 20151105
  2. FEXOFENADINE HYDROCHLORIDE. [Suspect]
     Active Substance: FEXOFENADINE HYDROCHLORIDE
     Indication: PRURITUS
     Route: 048
     Dates: start: 20150518, end: 20151105
  3. AMLODIPINE [Concomitant]
     Active Substance: AMLODIPINE BESYLATE
  4. GENINAX [Concomitant]
     Active Substance: GARENOXACIN MESYLATE
  5. CELESTAMINE [Concomitant]
     Active Substance: BETAMETHASONE\DEXCHLORPHENIRAMINE MALEATE
     Indication: RASH
     Route: 065
     Dates: start: 20151006
  6. LEVOCETIRIZINE [Suspect]
     Active Substance: LEVOCETIRIZINE
     Indication: RASH GENERALISED
     Route: 048
     Dates: start: 20150525, end: 20151105
  7. ASVERIN (TIPEPIDINE HIBENZATE) [Concomitant]
     Active Substance: TIPEPIDINE HIBENZATE
  8. CELESTAMINE [Concomitant]
     Active Substance: BETAMETHASONE\DEXCHLORPHENIRAMINE MALEATE
     Indication: RASH
     Route: 065
     Dates: start: 20150831
  9. FEXOFENADINE HYDROCHLORIDE. [Suspect]
     Active Substance: FEXOFENADINE HYDROCHLORIDE
     Indication: RASH GENERALISED
     Route: 048
     Dates: start: 20150518, end: 20151105
  10. ATORVASTATIN [Concomitant]
     Active Substance: ATORVASTATIN
  11. PL [Concomitant]
     Active Substance: ACETAMINOPHEN\CAFFEINE\PROMETHAZINE\SALICYLAMIDE
  12. CARBOCISTEINE [Concomitant]
     Active Substance: CARBOCYSTEINE
  13. OMEPRAL [Concomitant]
     Active Substance: OMEPRAZOLE
  14. POLARAMINE [Suspect]
     Active Substance: DEXCHLORPHENIRAMINE MALEATE
     Indication: RASH GENERALISED
     Route: 048
     Dates: start: 20150710, end: 20151105
  15. POLARAMINE [Suspect]
     Active Substance: DEXCHLORPHENIRAMINE MALEATE
     Indication: PRURITUS
     Route: 048
     Dates: start: 20150710, end: 20151105
  16. VESICARE [Concomitant]
     Active Substance: SOLIFENACIN SUCCINATE
  17. MUCODYNE [Concomitant]
     Active Substance: CARBOCYSTEINE
  18. AVAPRO [Concomitant]
     Active Substance: IRBESARTAN
  19. SULBACILLIN [Concomitant]
     Active Substance: AMPICILLIN SODIUM\SULBACTAM SODIUM
     Route: 065
     Dates: start: 2015
  20. CELESTAMINE [Concomitant]
     Active Substance: BETAMETHASONE\DEXCHLORPHENIRAMINE MALEATE
     Indication: RASH
     Route: 065
     Dates: start: 20150803

REACTIONS (6)
  - Pyrexia [Recovering/Resolving]
  - Pneumonia [Recovering/Resolving]
  - Platelet count decreased [Recovered/Resolved]
  - Rash [Recovering/Resolving]
  - Disseminated intravascular coagulation [Recovered/Resolved]
  - Eosinophil count increased [Recovering/Resolving]

NARRATIVE: CASE EVENT DATE: 2015
